FAERS Safety Report 12732227 (Version 1)
Quarter: 2016Q3

REPORT INFORMATION
  Report Type: Spontaneous
  Country: US (occurrence: US)
  Receive Date: 20160909
  Receipt Date: 20160909
  Transmission Date: 20161109
  Serious: No
  Sender: FDA-Public Use
  Company Number: None

PATIENT
  Age: 33 Year
  Sex: Female
  Weight: 58.5 kg

DRUGS (5)
  1. MULTIVITAMINS FOR WOMEN [Concomitant]
  2. AMPHETAMINE SALTS ER, 30 MG [Suspect]
     Active Substance: AMPHETAMINE ASPARTATE\AMPHETAMINE SULFATE\DEXTROAMPHETAMINE SACCHARATE\DEXTROAMPHETAMINE SULFATE
     Indication: ATTENTION DEFICIT/HYPERACTIVITY DISORDER
     Route: 048
     Dates: start: 20160411, end: 20160419
  3. CLARITIN [Concomitant]
     Active Substance: LORATADINE
  4. LAMOTRIGINE. [Concomitant]
     Active Substance: LAMOTRIGINE
  5. BIRTH CONTROL PILLS [Concomitant]
     Active Substance: UNSPECIFIED INGREDIENT

REACTIONS (8)
  - Somnolence [None]
  - Tinnitus [None]
  - Product substitution issue [None]
  - Drug ineffective [None]
  - Depression [None]
  - Feeling abnormal [None]
  - Gastrointestinal disorder [None]
  - Memory impairment [None]

NARRATIVE: CASE EVENT DATE: 20160411
